FAERS Safety Report 7742259-9 (Version None)
Quarter: 2011Q3

REPORT INFORMATION
  Report Type: 
  Country: None (occurrence: None)
  Receive Date: 20110901
  Receipt Date: 20110822
  Transmission Date: 20111222
  Serious: Yes (Other)
  Sender: FDA-Public Use
  Company Number: 2011SP040285

PATIENT
  Age: 63 Year
  Sex: Female

DRUGS (3)
  1. ZITHROMAX [Concomitant]
  2. DESLORATADINE [Suspect]
     Indication: HYPERSENSITIVITY
     Dosage: 5 MG;QD
     Dates: start: 20110801
  3. LEVOTHYROXINE SODIUM [Concomitant]

REACTIONS (1)
  - HAEMOPTYSIS [None]
